FAERS Safety Report 4843105-3 (Version None)
Quarter: 2005Q4

REPORT INFORMATION
  Report Type: 
  Country: None (occurrence: None)
  Receive Date: 20051027
  Receipt Date: 20051003
  Transmission Date: 20060501
  Serious: No
  Sender: FDA-Public Use
  Company Number: ZICO001298

PATIENT
  Age: 58 Year
  Sex: Male

DRUGS (1)
  1. PRIALT [Suspect]
     Dosage: INTRATHECAL
     Route: 037
     Dates: start: 20050601

REACTIONS (9)
  - BALANCE DISORDER [None]
  - CLUMSINESS [None]
  - COORDINATION ABNORMAL [None]
  - GAIT DISTURBANCE [None]
  - HALLUCINATION, AUDITORY [None]
  - HALLUCINATION, VISUAL [None]
  - MUSCLE SPASMS [None]
  - PAIN [None]
  - SENSORY DISTURBANCE [None]
